FAERS Safety Report 4972229-5 (Version None)
Quarter: 2006Q2

REPORT INFORMATION
  Report Type: 
  Country: None (occurrence: None)
  Receive Date: 20060413
  Receipt Date: 20060405
  Transmission Date: 20061013
  Serious: Yes (Other)
  Sender: FDA-Public Use
  Company Number: NL-GLAXOSMITHKLINE-B0420164A

PATIENT
  Sex: Male

DRUGS (1)
  1. LAMIVUDINE + ZIDOVUDINE [Suspect]
     Dates: start: 19960101

REACTIONS (3)
  - CYANOSIS [None]
  - HYPOTHERMIA [None]
  - TEMPERATURE REGULATION DISORDER [None]
